FAERS Safety Report 6975763-1 (Version None)
Quarter: 2010Q3

REPORT INFORMATION
  Report Type: 
  Country: None (occurrence: None)
  Receive Date: 20100910
  Receipt Date: 20090428
  Transmission Date: 20110219
  Serious: No
  Sender: FDA-Public Use
  Company Number: US-WYE-H08828709

PATIENT
  Sex: Female
  Weight: 95.79 kg

DRUGS (8)
  1. PRISTIQ [Suspect]
     Indication: MAJOR DEPRESSION
     Route: 048
     Dates: start: 20090312, end: 20090401
  2. INDERAL [Concomitant]
  3. SYNTHROID [Concomitant]
  4. MINOCIN [Concomitant]
  5. SINGULAIR [Concomitant]
  6. SPIRONOLACTONE [Concomitant]
  7. CARDIZEM [Concomitant]
  8. LOESTRIN 1.5/30 [Concomitant]

REACTIONS (1)
  - TACHYCARDIA [None]
